FAERS Safety Report 5821908-6 (Version None)
Quarter: 2008Q3

REPORT INFORMATION
  Report Type: 
  Country: None (occurrence: None)
  Receive Date: 20080724
  Receipt Date: 20080714
  Transmission Date: 20090109
  Serious: Yes (Other)
  Sender: FDA-Public Use
  Company Number: US-ABBOTT-08P-163-0461255-00

PATIENT
  Sex: Male
  Weight: 82.628 kg

DRUGS (2)
  1. NIASPAN [Suspect]
     Indication: HIGH DENSITY LIPOPROTEIN DECREASED
     Route: 048
     Dates: start: 20080601, end: 20080701
  2. NIASPAN [Suspect]
     Route: 048
     Dates: start: 20080701

REACTIONS (3)
  - BURSITIS [None]
  - LOCALISED INFECTION [None]
  - SEPSIS [None]
